FAERS Safety Report 6968707-X (Version None)
Quarter: 2010Q3

REPORT INFORMATION
  Report Type: 
  Country: None (occurrence: None)
  Receive Date: 20100907
  Receipt Date: 20100831
  Transmission Date: 20110219
  Serious: Yes (Life-Threatening)
  Sender: FDA-Public Use
  Company Number: JP-AMGEN-QUU427413

PATIENT
  Sex: Male
  Weight: 55 kg

DRUGS (12)
  1. ENBREL [Suspect]
     Indication: RHEUMATOID ARTHRITIS
     Route: 058
     Dates: start: 20090903, end: 20100421
  2. CELECOXIB [Concomitant]
     Indication: RHEUMATOID ARTHRITIS
     Route: 048
     Dates: start: 20090417
  3. RHEUMATREX [Concomitant]
     Indication: RHEUMATOID ARTHRITIS
     Route: 048
     Dates: start: 20090421, end: 20090430
  4. RHEUMATREX [Concomitant]
     Route: 048
     Dates: start: 20090501, end: 20090514
  5. FOLIAMIN [Concomitant]
     Indication: LIVER DISORDER
     Route: 048
     Dates: start: 20090716, end: 20100324
  6. FOLIAMIN [Concomitant]
     Route: 048
     Dates: start: 20100325, end: 20100420
  7. ISCOTIN [Concomitant]
     Indication: ANTIBIOTIC PROPHYLAXIS
     Route: 048
     Dates: start: 20090812, end: 20100420
  8. METHOTREXATE [Concomitant]
     Indication: RHEUMATOID ARTHRITIS
     Route: 048
     Dates: start: 20090604, end: 20090729
  9. METHOTREXATE [Concomitant]
     Route: 048
     Dates: start: 20090730, end: 20100203
  10. METHOTREXATE [Concomitant]
     Route: 048
     Dates: start: 20100204, end: 20100420
  11. METHOTREXATE [Concomitant]
     Route: 048
     Dates: start: 20090501, end: 20090514
  12. TAKEPRON [Concomitant]
     Indication: REFLUX OESOPHAGITIS
     Route: 048
     Dates: start: 20090417

REACTIONS (2)
  - BREAST CANCER METASTATIC [None]
  - HERPES ZOSTER [None]
